FAERS Safety Report 7053171-5 (Version None)
Quarter: 2010Q4

REPORT INFORMATION
  Report Type: 
  Country: None (occurrence: None)
  Receive Date: 20101020
  Receipt Date: 20101008
  Transmission Date: 20110411
  Serious: Yes (Hospitalization)
  Sender: FDA-Public Use
  Company Number: GB-JNJFOC-20101003086

PATIENT
  Sex: Male
  Weight: 2.18 kg

DRUGS (4)
  1. REMICADE [Suspect]
     Indication: DRUG EXPOSURE DURING PREGNANCY
     Dosage: ALSO REPORTED AS 360 MG
     Route: 064
  2. AZATHIOPRINE [Concomitant]
     Indication: DRUG EXPOSURE DURING PREGNANCY
     Route: 064
  3. PENTASA [Concomitant]
     Indication: DRUG EXPOSURE DURING PREGNANCY
     Route: 064
  4. PENTASA [Concomitant]
     Route: 064

REACTIONS (2)
  - HYPOGLYCAEMIA NEONATAL [None]
  - SMALL FOR DATES BABY [None]
